FAERS Safety Report 4616711-9 (Version None)
Quarter: 2005Q1

REPORT INFORMATION
  Report Type: 
  Country: None (occurrence: None)
  Receive Date: 20050321
  Receipt Date: 20050315
  Transmission Date: 20050727
  Serious: Yes (Life-Threatening)
  Sender: FDA-Public Use
  Company Number: 2005AP00941

PATIENT
  Sex: Male

DRUGS (3)
  1. SEROQUEL [Suspect]
     Indication: OBSESSIVE-COMPULSIVE DISORDER
     Dosage: 600 MG DAILY PO
     Route: 048
     Dates: end: 20031110
  2. FLUOXETINE HCL [Suspect]
     Indication: DEPRESSION
     Dosage: 80 MG DAILY PO
     Route: 048
     Dates: end: 20031110
  3. ERYTHROMYCIN [Suspect]
     Indication: UPPER RESPIRATORY TRACT INFECTION
     Dosage: 400 MG DAILY
     Dates: end: 20031110

REACTIONS (5)
  - CIRCULATORY COLLAPSE [None]
  - ELECTROCARDIOGRAM QT PROLONGED [None]
  - HYPOTENSION [None]
  - LOSS OF CONSCIOUSNESS [None]
  - TACHYARRHYTHMIA [None]
